FAERS Safety Report 7068597-3 (Version None)
Quarter: 2010Q4

REPORT INFORMATION
  Report Type: 
  Country: None (occurrence: None)
  Receive Date: 20101028
  Receipt Date: 20101018
  Transmission Date: 20110411
  Serious: Yes (Other)
  Sender: FDA-Public Use
  Company Number: PHFR2010GB01354

PATIENT
  Sex: Female

DRUGS (7)
  1. GLEEVEC [Suspect]
     Indication: GASTROINTESTINAL STROMAL TUMOUR
     Dosage: 800 MG, QD
     Dates: start: 20081216, end: 20091117
  2. SUNITINIB MALATE [Suspect]
     Indication: GASTROINTESTINAL STROMAL TUMOUR
     Dosage: 37.5 MG, QD
     Dates: end: 20100401
  3. AMLODIPINE [Concomitant]
     Dosage: 5 MG
     Route: 048
  4. PENICILLIN ^GRUNENTHAL^ [Concomitant]
     Dosage: 500 MG
     Route: 048
  5. SIMVASTATIN [Concomitant]
     Dosage: 40 MG
     Route: 048
  6. MAXOLON [Concomitant]
     Dosage: 10 MG
     Route: 058
  7. FERROUS GLUCONATE [Concomitant]
     Dosage: 600 MG
     Route: 058

REACTIONS (17)
  - ABDOMINAL DISTENSION [None]
  - ACUTE MYOCARDIAL INFARCTION [None]
  - ANAEMIA [None]
  - ASTHENIA [None]
  - ATRIOVENTRICULAR BLOCK FIRST DEGREE [None]
  - DECREASED APPETITE [None]
  - DIARRHOEA [None]
  - GASTROINTESTINAL STROMAL TUMOUR [None]
  - HEPATIC MASS [None]
  - LETHARGY [None]
  - LIP DRY [None]
  - MALAISE [None]
  - MALIGNANT NEOPLASM PROGRESSION [None]
  - MYOCARDIAL INFARCTION [None]
  - NAUSEA [None]
  - PULMONARY EMBOLISM [None]
  - VENTRICULAR EXTRASYSTOLES [None]
